FAERS Safety Report 18998934 (Version 1)
Quarter: 2021Q1

REPORT INFORMATION
  Report Type: Report from Study
  Country: None (occurrence: US)
  Receive Date: 20210312
  Receipt Date: 20210312
  Transmission Date: 20210420
  Serious: Yes (Other)
  Sender: FDA-Public Use
  Company Number: US-ABBVIE-21K-163-3805076-00

PATIENT
  Sex: Female

DRUGS (1)
  1. HUMIRA [Suspect]
     Active Substance: ADALIMUMAB
     Indication: PRODUCT USED FOR UNKNOWN INDICATION
     Route: 058
     Dates: end: 20201128

REACTIONS (10)
  - Hernia [Unknown]
  - Cellulitis [Unknown]
  - Sepsis [Unknown]
  - Colitis ulcerative [Not Recovered/Not Resolved]
  - Renal injury [Unknown]
  - Pulmonary oedema [Unknown]
  - Intra-abdominal fluid collection [Unknown]
  - Postoperative thrombosis [Unknown]
  - Respiratory failure [Unknown]
  - Pneumonia [Unknown]

NARRATIVE: CASE EVENT DATE: 2020
